FAERS Safety Report 19191384 (Version 2)
Quarter: 2021Q2

REPORT INFORMATION
  Report Type: Spontaneous
  Country: CA (occurrence: CA)
  Receive Date: 20210429
  Receipt Date: 20210430
  Transmission Date: 20210717
  Serious: Yes (Hospitalization)
  Sender: FDA-Public Use
  Company Number: CA-TERSERA THERAPEUTICS LLC-2021TRS001873

PATIENT

DRUGS (7)
  1. XERMELO [Suspect]
     Active Substance: TELOTRISTAT ETHYL
     Indication: CARCINOID SYNDROME
     Dosage: 250 MG, 8 HR
     Route: 048
     Dates: start: 20200512
  2. SOMATULINE AUTOGEL [Suspect]
     Active Substance: LANREOTIDE ACETATE
     Indication: NEUROENDOCRINE TUMOUR
     Dosage: 120 MG, EVERY 4 WEEKS
     Route: 058
     Dates: start: 20181018, end: 2019
  3. SOMATULINE AUTOGEL [Suspect]
     Active Substance: LANREOTIDE ACETATE
     Dosage: 180 MG, EVERY 21 DAYS
     Route: 058
     Dates: start: 20190918, end: 2020
  4. PREGABALIN. [Concomitant]
     Active Substance: PREGABALIN
     Indication: PRODUCT USED FOR UNKNOWN INDICATION
     Dosage: UNK
     Route: 065
  5. SOMATULINE AUTOGEL [Suspect]
     Active Substance: LANREOTIDE ACETATE
     Dosage: 180 MG, EVERY 2 WEEKS
     Route: 058
     Dates: start: 20200325, end: 2021
  6. SOMATULINE AUTOGEL [Suspect]
     Active Substance: LANREOTIDE ACETATE
     Dosage: 120 MG, EVERY 21 DAYS
     Route: 058
     Dates: start: 20190212, end: 2019
  7. SOMATULINE AUTOGEL [Suspect]
     Active Substance: LANREOTIDE ACETATE
     Dosage: 180 MG, EVERY 3 WEEKS
     Route: 058
     Dates: start: 20210302

REACTIONS (2)
  - Off label use [Unknown]
  - Abdominal neoplasm [Unknown]
